FAERS Safety Report 18338457 (Version 2)
Quarter: 2020Q4

REPORT INFORMATION
  Report Type: Report from Study
  Country: CO (occurrence: CO)
  Receive Date: 20201002
  Receipt Date: 20201015
  Transmission Date: 20210113
  Serious: Yes (Other)
  Sender: FDA-Public Use
  Company Number: PHHY2019CO212336

PATIENT
  Age: 63 Year
  Sex: Female
  Weight: 57 kg

DRUGS (2)
  1. FEMARA [Suspect]
     Active Substance: LETROZOLE
     Indication: BREAST CANCER
     Dosage: 2.5 MG, QD
     Route: 048
     Dates: start: 201911
  2. KISQALI [Suspect]
     Active Substance: RIBOCICLIB
     Indication: BREAST CANCER METASTATIC
     Dosage: 600 MG, QD
     Route: 048
     Dates: start: 202002

REACTIONS (15)
  - Bone pain [Unknown]
  - Asthenia [Not Recovered/Not Resolved]
  - Dizziness [Not Recovered/Not Resolved]
  - Haemoglobin increased [Unknown]
  - Platelet count decreased [Not Recovered/Not Resolved]
  - Feeling abnormal [Unknown]
  - Off label use [Unknown]
  - Insomnia [Unknown]
  - Gait disturbance [Not Recovered/Not Resolved]
  - Incorrect dose administered [Unknown]
  - Ill-defined disorder [Unknown]
  - Headache [Not Recovered/Not Resolved]
  - Bone cancer [Unknown]
  - General physical health deterioration [Unknown]
  - Pain [Unknown]

NARRATIVE: CASE EVENT DATE: 20201005
